FAERS Safety Report 10470960 (Version 4)
Quarter: 2014Q4

REPORT INFORMATION
  Report Type: Report from Study
  Country: TR (occurrence: TR)
  Receive Date: 20140923
  Receipt Date: 20141201
  Transmission Date: 20150528
  Serious: Yes (Hospitalization)
  Sender: FDA-Public Use
  Company Number: PHHY2014TR091579

PATIENT
  Age: 2 Year
  Sex: Male
  Weight: 15 kg

DRUGS (3)
  1. EXJADE [Suspect]
     Active Substance: DEFERASIROX
     Dosage: 625 MG, DAILY
     Route: 048
  2. EXJADE [Suspect]
     Active Substance: DEFERASIROX
     Indication: THALASSAEMIA BETA
     Dosage: 500 MG, DAILY
     Route: 048
     Dates: start: 20140507
  3. EXJADE [Suspect]
     Active Substance: DEFERASIROX
     Dosage: 500 MG, DAILY
     Route: 048

REACTIONS (8)
  - Nausea [Recovered/Resolved]
  - Pneumonia [Recovered/Resolved]
  - Lung infection [Unknown]
  - Serum ferritin increased [Unknown]
  - Wrong technique in drug usage process [Unknown]
  - Vomiting [Recovered/Resolved]
  - Diarrhoea [Recovered/Resolved]
  - Pyrexia [Not Recovered/Not Resolved]

NARRATIVE: CASE EVENT DATE: 20140507
